FAERS Safety Report 8963267 (Version 1)
Quarter: 2012Q4

REPORT INFORMATION
  Report Type: 
  Country: CH (occurrence: CH)
  Receive Date: 20121214
  Receipt Date: 20121214
  Transmission Date: 20130627
  Serious: Yes (Hospitalization)
  Sender: FDA-Public Use
  Company Number: CH-NAPPMUNDI-DEU-2012-0010007

PATIENT
  Age: 77 Year
  Sex: Female

DRUGS (9)
  1. MORPHINE [Suspect]
     Indication: BACK PAIN
     Dosage: 80 mg, daily
     Route: 048
     Dates: start: 201207
  2. DALMADORM [Suspect]
     Indication: BACK PAIN
     Dosage: 7.5 mg, bid
     Route: 065
  3. CALCIPARINE [Concomitant]
     Dosage: 5000 IU, bid
     Route: 065
  4. DOSPIR [Concomitant]
     Dosage: 1 DF, q4h
     Route: 065
  5. ESIDREX [Concomitant]
     Dosage: 50 mg, daily
     Route: 065
  6. SIMVASTATIN [Concomitant]
     Dosage: 40 mg, daily
     Route: 065
  7. NEXIUM                             /01479302/ [Concomitant]
     Dosage: 40 mg, daily
     Route: 065
  8. TORASEMIDE [Concomitant]
     Dosage: 10 mg, daily
     Route: 065
  9. DAFALGAN [Concomitant]
     Dosage: 4000 mg, daily
     Route: 065

REACTIONS (1)
  - Acute respiratory distress syndrome [Recovered/Resolved]
